FAERS Safety Report 23170355 (Version 1)
Quarter: 2023Q4

REPORT INFORMATION
  Report Type: Spontaneous
  Country: TR (occurrence: TR)
  Receive Date: 20231110
  Receipt Date: 20231110
  Transmission Date: 20240110
  Serious: Yes (Death, Life-Threatening, Hospitalization, Other)
  Sender: FDA-Public Use
  Company Number: TR-MLMSERVICE-20231030-4623606-1

PATIENT
  Age: 17 Year
  Sex: Female

DRUGS (5)
  1. FLUOXETINE [Suspect]
     Active Substance: FLUOXETINE HYDROCHLORIDE
     Indication: Suicide attempt
     Dosage: 8 TABLETS?STRENGTH: 20 MG
  2. SERTRALINE [Suspect]
     Active Substance: SERTRALINE HYDROCHLORIDE
     Indication: Suicide attempt
     Dosage: 10 TABLETS?STRENGTH: 100 MG
  3. METFORMIN [Suspect]
     Active Substance: METFORMIN HYDROCHLORIDE
     Indication: Suicide attempt
     Dosage: 40 TABLETS
     Route: 048
  4. RISPERIDONE [Suspect]
     Active Substance: RISPERIDONE
     Indication: Suicide attempt
     Dosage: 5 TABLETS?STRENGTH: 2 MG
  5. FLUVOXAMINE [Suspect]
     Active Substance: FLUVOXAMINE
     Indication: Suicide attempt
     Dosage: 10 TABLETS?STRENGTH: 100 MG

REACTIONS (5)
  - Brugada syndrome [Recovered/Resolved]
  - Lactic acidosis [Fatal]
  - Unmasking of previously unidentified disease [Recovered/Resolved]
  - Overdose [Recovered/Resolved]
  - Metabolic acidosis [Fatal]
